FAERS Safety Report 4295207-0 (Version None)
Quarter: 2004Q1

REPORT INFORMATION
  Report Type: 
  Country: None (occurrence: None)
  Receive Date: 20040212
  Receipt Date: 20040202
  Transmission Date: 20041129
  Serious: Yes (Other)
  Sender: FDA-Public Use
  Company Number: US-SHR-04-020610

PATIENT
  Age: 62 Year
  Sex: Female

DRUGS (9)
  1. BETASERON [Suspect]
     Indication: MULTIPLE SCLEROSIS
     Dosage: 8 MIU, EVERY 2 D, SUBCUTANEOUS
     Route: 058
     Dates: start: 20020927
  2. LIPITOR [Concomitant]
  3. OXYBUTYNIN [Concomitant]
  4. WELLBUTRIN [Concomitant]
  5. RISPERDAL [Concomitant]
  6. PROVIGIL [Concomitant]
  7. LEVOXYL [Concomitant]
  8. MULTIVITAMINS (RETINOL, PANTHENOL) [Concomitant]
  9. ADVAIR DISKUS (FLUTICASONE PROPIONATE, SALMETEROL XINAFOATE) [Concomitant]

REACTIONS (1)
  - LUNG CARCINOMA CELL TYPE UNSPECIFIED RECURRENT [None]
